FAERS Safety Report 9689818 (Version 2)
Quarter: 2013Q4

REPORT INFORMATION
  Report Type: Report from Study
  Country: US (occurrence: US)
  Receive Date: 20131115
  Receipt Date: 20131122
  Transmission Date: 20140711
  Serious: Yes (Death)
  Sender: FDA-Public Use
  Company Number: US-ROCHE-1304526

PATIENT
  Sex: Female
  Weight: 65.83 kg

DRUGS (1)
  1. CELLCEPT [Suspect]
     Indication: PULMONARY FIBROSIS
     Route: 048
     Dates: end: 20121214

REACTIONS (2)
  - Respiratory failure [Fatal]
  - Rheumatoid lung [Fatal]
